FAERS Safety Report 20469000 (Version 5)
Quarter: 2022Q3

REPORT INFORMATION
  Report Type: Spontaneous
  Country: JP (occurrence: JP)
  Receive Date: 20220214
  Receipt Date: 20220714
  Transmission Date: 20221026
  Serious: Yes (Other)
  Sender: FDA-Public Use
  Company Number: JP-GSKNCCC-Case-01417915_AE-54664

PATIENT

DRUGS (40)
  1. SOTROVIMAB [Suspect]
     Active Substance: SOTROVIMAB
     Dosage: 500 MG/100 ML/30 MIN, QD
     Dates: start: 20220206, end: 20220206
  2. ACETAMINOPHEN [Concomitant]
     Active Substance: ACETAMINOPHEN
     Dosage: 500 MG
     Dates: start: 20220210, end: 20220210
  3. SODIUM CHLORIDE [Concomitant]
     Active Substance: SODIUM CHLORIDE
     Dosage: 20 ML
     Dates: start: 20220212, end: 20220212
  4. SODIUM CHLORIDE [Concomitant]
     Active Substance: SODIUM CHLORIDE
     Dosage: 100 ML
     Dates: start: 20220213, end: 20220213
  5. DISTILLED WATER [Concomitant]
     Dosage: 40 ML
     Dates: start: 20220210, end: 20220210
  6. DISTILLED WATER [Concomitant]
     Dosage: 20 ML OVER 1 HOUR
     Dates: start: 20220211, end: 20220218
  7. SODIUM CHLORIDE [Concomitant]
     Active Substance: SODIUM CHLORIDE
     Dosage: 100 ML
     Dates: start: 20220206, end: 20220206
  8. SODIUM CHLORIDE [Concomitant]
     Active Substance: SODIUM CHLORIDE
     Dosage: 500 ML
     Dates: start: 20220207, end: 20220207
  9. SODIUM CHLORIDE [Concomitant]
     Active Substance: SODIUM CHLORIDE
     Dosage: 200 ML
     Dates: start: 20220210, end: 20220211
  10. SODIUM CHLORIDE [Concomitant]
     Active Substance: SODIUM CHLORIDE
     Dosage: 300 ML
     Dates: start: 20220212, end: 20220216
  11. SODIUM CHLORIDE [Concomitant]
     Active Substance: SODIUM CHLORIDE
     Dosage: 100 ML OVER 1 HOUR
     Dates: start: 20220217, end: 20220218
  12. CEFTRIAXONE SODIUM [Concomitant]
     Active Substance: CEFTRIAXONE SODIUM
     Dosage: 2 G, FROM 16:00 OVER 1 HOUR
     Dates: start: 20220212, end: 20220216
  13. SOLDEM 3A [Concomitant]
     Active Substance: CARBOHYDRATES\POTASSIUM CHLORIDE\SODIUM CHLORIDE\SODIUM LACTATE
     Dosage: 500 ML EVERY 12 HOURS
     Dates: start: 20220215, end: 20220221
  14. DEXAMETHASONE SODIUM PHOSPHATE [Concomitant]
     Active Substance: DEXAMETHASONE SODIUM PHOSPHATE
     Dosage: 2 ML
     Dates: start: 20220210, end: 20220216
  15. CYANOCOBALAMIN\PYRIDOXINE HYDROCHLORIDE\THIAMINE [Concomitant]
     Active Substance: CYANOCOBALAMIN\PYRIDOXINE HYDROCHLORIDE\THIAMINE
     Dosage: UNK, OVER 12 HOURS
     Dates: start: 20220215, end: 20220221
  16. VITAMIN C [Concomitant]
     Active Substance: ASCORBIC ACID
     Dosage: 500 MG EVERY 12 HOURS
     Dates: start: 20220215, end: 20220221
  17. ELECTROLYTES NOS [Concomitant]
     Active Substance: ELECTROLYTES NOS
     Dosage: 500 ML OVER 12 HOURS
     Dates: start: 20220208, end: 20220208
  18. ELECTROLYTES NOS [Concomitant]
     Active Substance: ELECTROLYTES NOS
     Dosage: 500 ML
     Dates: start: 20220210, end: 20220214
  19. VEKLURY [Concomitant]
     Active Substance: REMDESIVIR
     Dosage: 200 MG
     Dates: start: 20220210, end: 20220210
  20. VEKLURY [Concomitant]
     Active Substance: REMDESIVIR
     Dosage: 100 MG
     Dates: start: 20220211, end: 20220218
  21. CALCIUM CHLORIDE\MALTOSE\POTASSIUM CHLORIDE\SODIUM CHLORIDE\SODIUM LAC [Concomitant]
     Active Substance: CALCIUM CHLORIDE\MALTOSE\POTASSIUM CHLORIDE\SODIUM CHLORIDE\SODIUM LACTATE
     Dosage: 500 ML EVERY 12 HOURS
     Dates: start: 20220215, end: 20220221
  22. LACTEC INJECTION [Concomitant]
     Dosage: 1000 ML
     Dates: start: 20220207, end: 20220207
  23. LACTEC INJECTION [Concomitant]
     Dosage: 500 ML
     Dates: start: 20220208, end: 20220208
  24. LACTEC INJECTION [Concomitant]
     Dosage: 500 ML
     Dates: start: 20220210, end: 20220214
  25. MAGNESIUM OXIDE [Concomitant]
     Active Substance: MAGNESIUM OXIDE
     Dosage: 500 MG, BID AFTER BREAKFAST AND DINNER
  26. DAIOUKANZOUTOU [Concomitant]
     Dosage: 2.5 G, TID AFTER EACH MEAL
  27. PYRETHIA [Concomitant]
     Active Substance: PROMETHAZINE HYDROCHLORIDE
     Dosage: 25 MG, QD BEFORE SLEEP
     Dates: end: 20220227
  28. PHENOBARBITAL [Concomitant]
     Active Substance: PHENOBARBITAL
     Dosage: 30 MG, QD BEFORE SLEEP
     Dates: end: 20220227
  29. FLUNITRAZEPAM [Concomitant]
     Active Substance: FLUNITRAZEPAM
     Dosage: 2 MG, QD BEFORE SLEEP
  30. BENZALIN TABLETS [Concomitant]
     Dosage: 10 MG, QD BEFORE SLEEP
  31. RISPERIDONE [Concomitant]
     Active Substance: RISPERIDONE
     Dosage: 2 MG, AFTER BREAKFAST AND BEFORE SLEEP, 1 MG BID AFTER LUNCH AND DINNER, BID
     Dates: end: 20220223
  32. RISPERIDONE [Concomitant]
     Active Substance: RISPERIDONE
     Dosage: 2 MG, AFTER BREAKFAST, 1 MG BID AFTER LUNCH AND DINNER, 6 MG BEFORE SLEEP, BID
     Dates: start: 20220224, end: 20220224
  33. RISPERIDONE [Concomitant]
     Active Substance: RISPERIDONE
     Dosage: 6 MG, QD
     Dates: start: 20220225, end: 20220227
  34. RISPERIDONE [Concomitant]
     Active Substance: RISPERIDONE
     Dosage: 8 MG, QD, BEFORE SLEEP
     Dates: start: 20220228
  35. LEVOMEPROMAZINE [Concomitant]
     Active Substance: LEVOMEPROMAZINE
     Dosage: 75 MG, QD, BEFORE SLEEP
     Dates: end: 20220223
  36. PURSENNID TABLETS [Concomitant]
     Dosage: 12 MG, QD, BEFORE SLEEP
  37. RISPERIDONE [Concomitant]
     Active Substance: RISPERIDONE
     Dosage: 1 ML, 5 TIMES, AT RESTLESS
     Dates: start: 20220224, end: 20220224
  38. ACETAMINOPHEN [Concomitant]
     Active Substance: ACETAMINOPHEN
     Dosage: 300 MG, 7 TIMES, WHEN PYREXIA
     Dates: start: 20220210, end: 20220210
  39. BROTIZOLAM [Concomitant]
     Active Substance: BROTIZOLAM
     Dosage: 0.25 MG, 5 TIMES, WHEN INSOMNIA
     Dates: start: 20220224, end: 20220224
  40. SODIUM PICOSULFATE ORAL SOLUTION [Concomitant]
     Dosage: ENTIRE AMOUNT, BEFORE SLEEP WHEN CONSTIPATION
     Dates: start: 20220216, end: 20220216

REACTIONS (5)
  - Hypothermia [Unknown]
  - Loss of consciousness [Unknown]
  - COVID-19 pneumonia [Unknown]
  - COVID-19 [Unknown]
  - Malaise [Unknown]

NARRATIVE: CASE EVENT DATE: 20220201
